FAERS Safety Report 15007241 (Version 2)
Quarter: 2018Q2

REPORT INFORMATION
  Report Type: Spontaneous
  Country: CO (occurrence: CO)
  Receive Date: 20180613
  Receipt Date: 20180622
  Transmission Date: 20180711
  Serious: Yes (Other)
  Sender: FDA-Public Use
  Company Number: CO-BAYER-2018-105923

PATIENT
  Sex: Male

DRUGS (1)
  1. ASPIRINA 100 MG [Suspect]
     Active Substance: ASPIRIN
     Dosage: UNK, QD

REACTIONS (5)
  - Eye oedema [Not Recovered/Not Resolved]
  - Eyelid haematoma [Not Recovered/Not Resolved]
  - Tinnitus [Not Recovered/Not Resolved]
  - Blindness [Not Recovered/Not Resolved]
  - Eyelid contusion [Not Recovered/Not Resolved]
